FAERS Safety Report 5865203-8 (Version None)
Quarter: 2008Q3

REPORT INFORMATION
  Report Type: 
  Country: None (occurrence: None)
  Receive Date: 20080829
  Receipt Date: 20080729
  Transmission Date: 20090109
  Serious: No
  Sender: FDA-Public Use
  Company Number: B0529823A

PATIENT
  Age: 51 Year
  Sex: Female

DRUGS (1)
  1. LAPATINIB [Suspect]
     Route: 048
     Dates: end: 20080519

REACTIONS (1)
  - GASTROINTESTINAL DISORDER [None]
